FAERS Safety Report 21642725 (Version 1)
Quarter: 2022Q4

REPORT INFORMATION
  Report Type: Report from Study
  Country: BE (occurrence: BE)
  Receive Date: 20221125
  Receipt Date: 20221125
  Transmission Date: 20230113
  Serious: Yes (Hospitalization)
  Sender: FDA-Public Use
  Company Number: BE-ABBVIE-4171957

PATIENT
  Sex: Male

DRUGS (11)
  1. CARBIDOPA\LEVODOPA [Suspect]
     Active Substance: CARBIDOPA\LEVODOPA
     Indication: Parkinson^s disease
     Dosage: MD: 9.1 ML; CD: 4.3 ML/H; ED: 3.4 ML DURING 16 HOURS
     Route: 050
     Dates: start: 20220819, end: 20220901
  2. CARBIDOPA\LEVODOPA [Suspect]
     Active Substance: CARBIDOPA\LEVODOPA
     Route: 050
     Dates: start: 20201207
  3. CARBIDOPA\LEVODOPA [Suspect]
     Active Substance: CARBIDOPA\LEVODOPA
     Dosage: MD: 9.3 ML; CD: 4.1 ML/H; ED: 3.4 ML DURING 16 HOURS
     Route: 050
     Dates: start: 20220315, end: 20220819
  4. CARBIDOPA\LEVODOPA [Suspect]
     Active Substance: CARBIDOPA\LEVODOPA
     Dosage: MD: 9.1 ML; CD: 4.4 ML/H; ED: 3.4 ML DURING 16 HOURS
     Route: 050
     Dates: start: 20220901, end: 20221122
  5. CARBIDOPA\LEVODOPA [Suspect]
     Active Substance: CARBIDOPA\LEVODOPA
     Dosage: MD: 8.7 ML, CD: 4.2 ML/H, ED: 3.4 ML DURING 16 HOURS
     Route: 050
     Dates: start: 20221122
  6. PRAMIPEXOLE [Concomitant]
     Active Substance: PRAMIPEXOLE
     Indication: Parkinson^s disease
     Dosage: 1.05, RETARD
  7. STALEVO [Concomitant]
     Active Substance: CARBIDOPA\ENTACAPONE\LEVODOPA
     Indication: Parkinson^s disease
     Dosage: AT 07.00, 13.00
  8. STALEVO [Concomitant]
     Active Substance: CARBIDOPA\ENTACAPONE\LEVODOPA
     Indication: Parkinson^s disease
     Dosage: AT 10.00, 15.00, 18.00
  9. STALEVO [Concomitant]
     Active Substance: CARBIDOPA\ENTACAPONE\LEVODOPA
     Indication: Parkinson^s disease
     Dosage: AROUND 04.00 IN THE MORNING
  10. BENSERAZIDE\LEVODOPA [Concomitant]
     Active Substance: BENSERAZIDE\LEVODOPA
     Indication: Parkinson^s disease
     Dosage: IN THE EVENING WHEN PUMP IS REMOVED
  11. BENSERAZIDE\LEVODOPA [Concomitant]
     Active Substance: BENSERAZIDE\LEVODOPA
     Indication: Parkinson^s disease
     Dosage: AT BEDTIME

REACTIONS (4)
  - Spinal operation [Unknown]
  - Back pain [Unknown]
  - Hyperaesthesia [Unknown]
  - Dyskinesia [Unknown]
